FAERS Safety Report 8912560 (Version 1)
Quarter: 2012Q4

REPORT INFORMATION
  Report Type: 
  Country: IT (occurrence: IT)
  Receive Date: 20121115
  Receipt Date: 20121115
  Transmission Date: 20130627
  Serious: Yes (Hospitalization)
  Sender: FDA-Public Use
  Company Number: IT-ASTRAZENECA-2012SE84841

PATIENT
  Age: 47 Year
  Sex: Female

DRUGS (7)
  1. QUETIAPINE [Suspect]
     Indication: PSYCHOTIC DISORDER
     Route: 048
  2. QUETIAPINE [Suspect]
     Indication: PSYCHOTIC DISORDER
     Route: 048
  3. SERTRALINE [Suspect]
     Indication: OBSESSIVE-COMPULSIVE DISORDER
  4. SERTRALINE [Suspect]
     Indication: OBSESSIVE-COMPULSIVE DISORDER
     Dosage: INCREASED DOSE
  5. VALPROATE SODIUM [Concomitant]
     Indication: MENTAL DISORDER DUE TO A GENERAL MEDICAL CONDITION
     Route: 048
  6. CLONAZEPAM [Concomitant]
     Dosage: 6 MG/DAY
  7. BIPERIDEN [Concomitant]
     Indication: TREMOR

REACTIONS (1)
  - Pleurothotonus [Recovered/Resolved]
